FAERS Safety Report 16952722 (Version 1)
Quarter: 2019Q4

REPORT INFORMATION
  Report Type: Spontaneous
  Country: US (occurrence: US)
  Receive Date: 20191023
  Receipt Date: 20191023
  Transmission Date: 20200122
  Serious: Yes (Other)
  Sender: FDA-Public Use
  Company Number: US-MYLANLABS-2019M1099958

PATIENT
  Age: 63 Year
  Sex: Female

DRUGS (3)
  1. ENDOXAN                            /00021101/ [Concomitant]
     Active Substance: CYCLOPHOSPHAMIDE
     Indication: INVASIVE BREAST CARCINOMA
     Dosage: COMPLETED 4 CYCLES
     Route: 065
  2. TAXOTERE [Interacting]
     Active Substance: DOCETAXEL
     Indication: INVASIVE BREAST CARCINOMA
     Dosage: COMPLETED 4 CYCLES
     Route: 065
  3. HYDROXYCHLOROQUINE [Suspect]
     Active Substance: HYDROXYCHLOROQUINE
     Indication: RHEUMATOID ARTHRITIS
     Dosage: RECEIVING SINCE 33 YEARS
     Route: 065

REACTIONS (2)
  - Maculopathy [Recovering/Resolving]
  - Drug interaction [Recovering/Resolving]
